FAERS Safety Report 4807441-9 (Version None)
Quarter: 2005Q4

REPORT INFORMATION
  Report Type: 
  Country: None (occurrence: None)
  Receive Date: 20051024
  Receipt Date: 20010202
  Transmission Date: 20060501
  Serious: Yes (Hospitalization)
  Sender: FDA-Public Use
  Company Number: US-MERCK-01020436

PATIENT
  Age: 60 Year
  Sex: Female

DRUGS (3)
  1. FOSAMAX [Suspect]
     Indication: OSTEOPOROSIS
     Route: 048
     Dates: start: 19980101, end: 19980101
  2. FOSAMAX [Suspect]
     Route: 048
     Dates: start: 19980101, end: 19980101
  3. SYNTHROID [Concomitant]
     Route: 065

REACTIONS (1)
  - CHEST PAIN [None]
